FAERS Safety Report 15953724 (Version 1)
Quarter: 2019Q1

REPORT INFORMATION
  Report Type: Report from Study
  Country: ES (occurrence: ES)
  Receive Date: 20190212
  Receipt Date: 20190212
  Transmission Date: 20190417
  Serious: Yes (Other)
  Sender: FDA-Public Use
  Company Number: ES-SA-2019SA032977

PATIENT
  Sex: Female

DRUGS (2)
  1. JARDIANCE [Suspect]
     Active Substance: EMPAGLIFLOZIN
     Indication: TYPE 2 DIABETES MELLITUS
     Dosage: 1 U, QD(0-1-0)
     Route: 048
  2. INSULIN GLARGINE [Suspect]
     Active Substance: INSULIN GLARGINE
     Indication: TYPE 2 DIABETES MELLITUS
     Dosage: 42 IU, QD
     Route: 058

REACTIONS (7)
  - Product storage error [Unknown]
  - Asthenia [Recovering/Resolving]
  - Laziness [Recovering/Resolving]
  - Pollakiuria [Recovering/Resolving]
  - Anaemia [Recovering/Resolving]
  - Cataract [Recovering/Resolving]
  - Nasopharyngitis [Recovered/Resolved]
